FAERS Safety Report 14419987 (Version 2)
Quarter: 2021Q3

REPORT INFORMATION
  Report Type: Spontaneous
  Country: IN (occurrence: IN)
  Receive Date: 20180122
  Receipt Date: 20210909
  Transmission Date: 20211014
  Serious: Yes (Other)
  Sender: FDA-Public Use
  Company Number: IN-PFIZER INC-2018023946

PATIENT
  Age: 44 Year
  Sex: Male

DRUGS (1)
  1. CYTARABINE. [Suspect]
     Active Substance: CYTARABINE
     Indication: ACUTE MYELOID LEUKAEMIA
     Dosage: UNK (HIGH?DOSE)

REACTIONS (3)
  - Ataxia [Recovering/Resolving]
  - Neurotoxicity [Recovering/Resolving]
  - Nystagmus [Recovering/Resolving]
